FAERS Safety Report 5175893-3 (Version None)
Quarter: 2006Q4

REPORT INFORMATION
  Report Type: 
  Country: None (occurrence: None)
  Receive Date: 20061215
  Receipt Date: 20061121
  Transmission Date: 20070319
  Serious: Yes (Other)
  Sender: FDA-Public Use
  Company Number: CN-GLAXOSMITHKLINE-B0447974A

PATIENT
  Age: 6 Year
  Sex: Female

DRUGS (1)
  1. ALBENDAZOLE [Suspect]
     Dosage: .4G ALTERNATE DAYS
     Route: 048
     Dates: start: 20061105, end: 20061115

REACTIONS (6)
  - DRUG ADMINISTRATION ERROR [None]
  - HEADACHE [None]
  - NAUSEA [None]
  - OVERDOSE [None]
  - VOMITING [None]
  - YELLOW SKIN [None]
